FAERS Safety Report 9478301 (Version 2)
Quarter: 2014Q1

REPORT INFORMATION
  Report Type: Spontaneous
  Country: BR (occurrence: BR)
  Receive Date: 20130827
  Receipt Date: 20140306
  Transmission Date: 20141002
  Serious: Yes (Other)
  Sender: FDA-Public Use
  Company Number: BR-JNJFOC-20130810937

PATIENT
  Age: 55 Year
  Sex: Female
  Weight: 67 kg

DRUGS (9)
  1. REMICADE [Suspect]
     Indication: RHEUMATOID ARTHRITIS
     Route: 042
     Dates: start: 2010
  2. TECNOMET [Concomitant]
     Indication: RHEUMATOID ARTHRITIS
     Route: 065
  3. PREDNISONE [Concomitant]
     Route: 065
  4. CAPTOPRIL [Concomitant]
     Route: 065
  5. HYDROCHLOROTHIAZIDE [Concomitant]
     Route: 065
  6. FLUNARIZINE DIHYDROCHLORIDE [Concomitant]
     Indication: DIZZINESS
     Route: 065
  7. OMEPRAZOLE [Concomitant]
     Route: 065
  8. FOLIC ACID [Concomitant]
     Route: 065
  9. RENAPRIL [Concomitant]
     Route: 065

REACTIONS (8)
  - Anaemia [Not Recovered/Not Resolved]
  - Visual impairment [Not Recovered/Not Resolved]
  - Heart rate decreased [Not Recovered/Not Resolved]
  - Blood cholesterol increased [Not Recovered/Not Resolved]
  - Oropharyngeal pain [Unknown]
  - Dizziness [Not Recovered/Not Resolved]
  - Pain [Not Recovered/Not Resolved]
  - Influenza [Recovered/Resolved]
